FAERS Safety Report 20177405 (Version 1)
Quarter: 2021Q4

REPORT INFORMATION
  Report Type: Spontaneous
  Country: US (occurrence: None)
  Receive Date: 20211212
  Receipt Date: 20211212
  Transmission Date: 20220303
  Serious: Yes (Death)
  Sender: FDA-Public Use
  Company Number: None

PATIENT
  Age: 84 Year
  Sex: Male

DRUGS (1)
  1. OXYTOCIN [Suspect]
     Active Substance: OXYTOCIN
     Indication: Orgasm abnormal
     Dates: start: 20211012, end: 20211202

REACTIONS (3)
  - Cardiac arrest [None]
  - Dyspnoea [None]
  - Product use in unapproved indication [None]

NARRATIVE: CASE EVENT DATE: 20211202
